FAERS Safety Report 4412170-X (Version None)
Quarter: 2004Q3

REPORT INFORMATION
  Report Type: 
  Country: None (occurrence: None)
  Receive Date: 20040730
  Receipt Date: 20040610
  Transmission Date: 20050211
  Serious: Yes (Hospitalization)
  Sender: FDA-Public Use
  Company Number: US-AMGEN-US079681

PATIENT
  Sex: Female

DRUGS (1)
  1. NEULASTA [Suspect]
     Indication: AGRANULOCYTOSIS
     Route: 058
     Dates: start: 20030627

REACTIONS (4)
  - ABSCESS JAW [None]
  - CELLULITIS [None]
  - FEBRILE INFECTION [None]
  - LEUKOCYTOSIS [None]
